FAERS Safety Report 14774545 (Version 1)
Quarter: 2018Q2

REPORT INFORMATION
  Report Type: Spontaneous
  Country: US (occurrence: US)
  Receive Date: 20180418
  Receipt Date: 20180418
  Transmission Date: 20180711
  Serious: Yes (Death)
  Sender: FDA-Public Use
  Company Number: US-LPDUSPRD-20180617

PATIENT
  Age: 21 Year
  Sex: Male

DRUGS (5)
  1. CRANIOSPINAL IRRADIATION [Suspect]
     Active Substance: RADIATION THERAPY
     Dosage: 23.4 GY
     Route: 050
  2. CARBOPLATIN. [Suspect]
     Active Substance: CARBOPLATIN
     Dosage: SEVEN CYCLES
     Route: 065
  3. DEXAMETHASONE SODIUM PHOSPHATE INJECTION, USP (4930-25) [Suspect]
     Active Substance: DEXAMETHASONE SODIUM PHOSPHATE
     Dosage: UNKNOWN
     Route: 042
  4. CYCLOPHOSPHAMIDE. [Suspect]
     Active Substance: CYCLOPHOSPHAMIDE
     Dosage: HIGH DOSE
     Route: 065
  5. VINCRISTINE [Suspect]
     Active Substance: VINCRISTINE
     Dosage: SIX CYCLES
     Route: 065

REACTIONS (6)
  - Bacterial sepsis [Fatal]
  - Device related infection [Unknown]
  - Pancytopenia [Unknown]
  - Osteomyelitis [Unknown]
  - Fungal sepsis [Fatal]
  - Off label use [Unknown]
